FAERS Safety Report 18579863 (Version 5)
Quarter: 2021Q2

REPORT INFORMATION
  Report Type: Report from Study
  Country: MX (occurrence: MX)
  Receive Date: 20201204
  Receipt Date: 20210408
  Transmission Date: 20210717
  Serious: Yes (Hospitalization, Other)
  Sender: FDA-Public Use
  Company Number: MX-TAKEDA-MX202012949

PATIENT
  Sex: Male
  Weight: 22.8 kg

DRUGS (5)
  1. IDURSULFASE [Suspect]
     Active Substance: IDURSULFASE
     Dosage: 12 MILLIGRAM, 1/WEEK
     Route: 042
  2. IDURSULFASE [Suspect]
     Active Substance: IDURSULFASE
     Dosage: 1 VIAL, 6MG/3ML
     Route: 042
  3. IDURSULFASE [Suspect]
     Active Substance: IDURSULFASE
     Indication: MUCOPOLYSACCHARIDOSIS II
     Dosage: 1 DOSAGE FORM, 1X/WEEK
     Route: 042
  4. IDURSULFASE [Suspect]
     Active Substance: IDURSULFASE
     Dosage: 1 DOSAGE FORM, 1X/WEEK
     Route: 042
     Dates: start: 20200430
  5. IDURSULFASE [Suspect]
     Active Substance: IDURSULFASE
     Dosage: 3 VIALS, 6 MG/3 ML, 1X/WEEK
     Route: 042
     Dates: start: 20200416

REACTIONS (3)
  - Umbilical hernia [Recovered/Resolved]
  - Discontinued product administered [Recovering/Resolving]
  - Inappropriate schedule of product administration [Recovering/Resolving]
